FAERS Safety Report 25316514 (Version 1)
Quarter: 2025Q2

REPORT INFORMATION
  Report Type: Spontaneous
  Country: US (occurrence: US)
  Receive Date: 20250515
  Receipt Date: 20250515
  Transmission Date: 20250717
  Serious: No
  Sender: RANBAXY
  Company Number: US-SUN PHARMACEUTICAL INDUSTRIES LTD-2025R1-497439

PATIENT
  Sex: Male

DRUGS (2)
  1. ILUMYA [Suspect]
     Active Substance: TILDRAKIZUMAB-ASMN
     Indication: Erythrodermic psoriasis
     Route: 065
     Dates: start: 2019, end: 2019
  2. ILUMYA [Suspect]
     Active Substance: TILDRAKIZUMAB-ASMN
     Route: 065
     Dates: start: 2025

REACTIONS (2)
  - Condition aggravated [Unknown]
  - Foot deformity [Unknown]

NARRATIVE: CASE EVENT DATE: 20230901
